FAERS Safety Report 7476773-0 (Version None)
Quarter: 2011Q2

REPORT INFORMATION
  Report Type: 
  Country: None (occurrence: None)
  Receive Date: 20110512
  Receipt Date: 20110422
  Transmission Date: 20111010
  Serious: No
  Sender: FDA-Public Use
  Company Number: US-B.I. PHARMACEUTICALS,INC./RIDGEFIELD-2011-BP-07372BP

PATIENT
  Age: 78 Year
  Sex: Female

DRUGS (5)
  1. PAXIL [Concomitant]
     Dosage: 10 MG
  2. PRADAXA [Suspect]
     Indication: ATRIAL FIBRILLATION
     Dosage: 300 MG
     Route: 048
     Dates: start: 20110226
  3. OMEPRAZOLE [Concomitant]
     Indication: HERNIA
     Dosage: 200 NR
     Route: 048
  4. PROPAFENONE HCL [Concomitant]
     Indication: ATRIAL FIBRILLATION
     Dosage: 450 MG
     Route: 048
  5. RYTHMOL [Concomitant]
     Dosage: 450 MG

REACTIONS (3)
  - FLATULENCE [None]
  - ABDOMINAL DISTENSION [None]
  - FREQUENT BOWEL MOVEMENTS [None]
